FAERS Safety Report 25226826 (Version 1)
Quarter: 2025Q2

REPORT INFORMATION
  Report Type: Spontaneous
  Country: FI (occurrence: FI)
  Receive Date: 20250422
  Receipt Date: 20250422
  Transmission Date: 20250716
  Serious: Yes (Life-Threatening)
  Sender: MYLAN
  Company Number: None

PATIENT
  Age: 66 Year
  Sex: Female

DRUGS (12)
  1. CLOZAPINE [Suspect]
     Active Substance: CLOZAPINE
     Indication: Schizophrenia
     Dosage: 400 MILLIGRAM, QD (400MG PER DAY)
     Dates: start: 2002
  2. Pantoprazol orion [Concomitant]
     Indication: Dyspepsia
     Dosage: 40 MILLIGRAM, QD (1X1)
  3. METFORMIN HYDROCHLORIDE [Concomitant]
     Active Substance: METFORMIN HYDROCHLORIDE
     Indication: Type 2 diabetes mellitus
     Dosage: 500 MILLIGRAM, QD (1X1)
  4. BISOPROLOL [Concomitant]
     Active Substance: BISOPROLOL
     Indication: Hypertension
     Dosage: 1.25 MILLIGRAM, BID (12 HOURS, 0,5+0,5)
  5. Amlodipin Orion [Concomitant]
     Indication: Hypertension
     Dosage: 5 MILLIGRAM, QD (1X1)
  6. Cardace [Concomitant]
     Indication: Hypertension
  7. ATORVASTATIN [Concomitant]
     Active Substance: ATORVASTATIN
     Indication: Blood cholesterol
     Dosage: 80 MILLIGRAM, QD (1X1)
  8. Ezetimib krka [Concomitant]
     Dosage: 10 MILLIGRAM, QD (1X1)
  9. MIRABEGRON [Concomitant]
     Active Substance: MIRABEGRON
     Dosage: 50 MILLIGRAM, QD (1X1)
  10. QUETIAPINE FUMARATE [Concomitant]
     Active Substance: QUETIAPINE FUMARATE
     Dosage: 25 MILLIGRAM, QD (1X1)
  11. RISPERIDONE [Concomitant]
     Active Substance: RISPERIDONE
     Indication: Schizophrenia
     Dosage: 1 MILLIGRAM, QD (1X1)
  12. MEMANTINE HYDROCHLORIDE [Concomitant]
     Active Substance: MEMANTINE HYDROCHLORIDE
     Indication: Dementia Alzheimer^s type
     Dosage: 20 MILLIGRAM, QD (1X1)

REACTIONS (1)
  - Follicular lymphoma stage IV [Recovered/Resolved with Sequelae]

NARRATIVE: CASE EVENT DATE: 20241023
